FAERS Safety Report 19363105 (Version 1)
Quarter: 2021Q2

REPORT INFORMATION
  Report Type: Spontaneous
  Country: HU (occurrence: HU)
  Receive Date: 20210603
  Receipt Date: 20210603
  Transmission Date: 20210717
  Serious: Yes (Other)
  Sender: FDA-Public Use
  Company Number: HU-AMGEN-HUNSP2021079282

PATIENT
  Age: 55 Year
  Sex: Male

DRUGS (8)
  1. NILOTINIB [Suspect]
     Active Substance: NILOTINIB
     Dosage: 300 MILLIGRAM, QD (150 MG, BID)
     Route: 065
     Dates: start: 20200313, end: 20200401
  2. PIPERACILIN/TAZOBACTAM [Suspect]
     Active Substance: PIPERACILLIN SODIUM\TAZOBACTAM SODIUM
     Indication: PRODUCT USED FOR UNKNOWN INDICATION
     Dosage: UNK
     Route: 065
     Dates: start: 20200115
  3. NILOTINIB [Suspect]
     Active Substance: NILOTINIB
     Indication: PRODUCT USED FOR UNKNOWN INDICATION
     Dosage: 600 MILLIGRAM, QD (300 MG, BID)
     Route: 065
     Dates: start: 20200430
  4. NILOTINIB [Suspect]
     Active Substance: NILOTINIB
     Dosage: 200 MILLIGRAM, QD
     Route: 065
     Dates: start: 20200212, end: 20200313
  5. NILOTINIB [Suspect]
     Active Substance: NILOTINIB
     Dosage: 450 MILLIGRAM, QD (300 MG IN THE MORNING+ 150 MG IN THE EVENING)
     Route: 065
     Dates: start: 20200401, end: 20200430
  6. FILGRASTIM [Suspect]
     Active Substance: FILGRASTIM
     Indication: PRODUCT USED FOR UNKNOWN INDICATION
     Dosage: 48 MU
     Route: 058
     Dates: start: 20200110, end: 202001
  7. ALLOPURINOL. [Concomitant]
     Active Substance: ALLOPURINOL
     Indication: CYTOREDUCTIVE SURGERY
     Dosage: 300 MILLIGRAM, QD
     Route: 065
     Dates: start: 20191105
  8. MEROPENEM. [Concomitant]
     Active Substance: MEROPENEM
     Indication: PRODUCT USED FOR UNKNOWN INDICATION
     Dosage: 3 GRAM, QD (1 G, TID)
     Route: 065
     Dates: start: 20200110

REACTIONS (5)
  - Neutrophil count increased [Recovered/Resolved]
  - Cytogenetic analysis abnormal [Unknown]
  - Haemoglobin decreased [Recovered/Resolved]
  - Platelet count increased [Recovered/Resolved]
  - White blood cell count increased [Recovered/Resolved]

NARRATIVE: CASE EVENT DATE: 20200120
